APPROVED DRUG PRODUCT: IMODIUM A-D
Active Ingredient: LOPERAMIDE HYDROCHLORIDE
Strength: 1MG/7.5ML
Dosage Form/Route: SOLUTION;ORAL
Application: N019487 | Product #002
Applicant: KENVUE BRANDS LLC
Approved: Jul 8, 2004 | RLD: Yes | RS: Yes | Type: OTC